FAERS Safety Report 19471438 (Version 1)
Quarter: 2021Q2

REPORT INFORMATION
  Report Type: Report from Study
  Country: None (occurrence: FR)
  Receive Date: 20210628
  Receipt Date: 20210628
  Transmission Date: 20210717
  Serious: Yes (Other)
  Sender: FDA-Public Use
  Company Number: FR-ABBVIE-21K-056-3962623-00

PATIENT
  Sex: Male

DRUGS (2)
  1. DUODOPA [Suspect]
     Active Substance: CARBIDOPA\LEVODOPA
     Indication: PARKINSON^S DISEASE
     Route: 050
     Dates: start: 202105, end: 20210615
  2. DUODOPA [Suspect]
     Active Substance: CARBIDOPA\LEVODOPA
     Dosage: MORNING DOSE: 10 ML, CONTINUOUS FLOW RATE DURING THE DAY: 6.4 ML/H, EXTRA DOSE: 0 ML
     Route: 050
     Dates: start: 20210615

REACTIONS (3)
  - Speech disorder [Unknown]
  - Bone neoplasm [Unknown]
  - Unevaluable event [Unknown]

NARRATIVE: CASE EVENT DATE: 2021
